FAERS Safety Report 9201030 (Version 2)
Quarter: 2013Q2

REPORT INFORMATION
  Report Type: Spontaneous
  Country: US (occurrence: None)
  Receive Date: 20130327
  Receipt Date: 20130402
  Transmission Date: 20140414
  Serious: Yes (Other)
  Sender: FDA-Public Use
  Company Number: PRED20130011

PATIENT
  Sex: Male

DRUGS (3)
  1. PREDNISONE [Suspect]
     Dates: start: 200512
  2. MYCOPHENOLATE MOFETIL [Suspect]
     Route: 048
     Dates: start: 200512, end: 2006
  3. TACROLIMUS [Suspect]
     Dates: start: 200512

REACTIONS (2)
  - Erythema infectiosum [None]
  - Aplastic anaemia [None]
